FAERS Safety Report 4448572-5 (Version None)
Quarter: 2004Q3

REPORT INFORMATION
  Report Type: 
  Country: None (occurrence: None)
  Receive Date: 20040909
  Receipt Date: 20040823
  Transmission Date: 20050211
  Serious: Yes (Life-Threatening, Hospitalization)
  Sender: FDA-Public Use
  Company Number: CA_040607034

PATIENT
  Age: 61 Year
  Sex: Male
  Weight: 95 kg

DRUGS (5)
  1. XIGRIS [Suspect]
     Indication: SEPSIS
     Dates: start: 20040610
  2. INSULIN [Concomitant]
  3. PROPOFOL [Concomitant]
  4. NOREPINEPHRINE [Concomitant]
  5. VASOPRESSIN INJECTION [Concomitant]

REACTIONS (2)
  - FULL BLOOD COUNT DECREASED [None]
  - THROMBOCYTOPENIA [None]
